FAERS Safety Report 6477476-1 (Version None)
Quarter: 2009Q4

REPORT INFORMATION
  Report Type: 
  Country: None (occurrence: None)
  Receive Date: 20091207
  Receipt Date: 20091110
  Transmission Date: 20100525
  Serious: Yes (Other)
  Sender: FDA-Public Use
  Company Number: US-SANOFI-AVENTIS-2009SA003865

PATIENT
  Sex: Female

DRUGS (1)
  1. GLIMEPIRIDE [Suspect]
     Indication: TYPE 2 DIABETES MELLITUS
     Route: 048
     Dates: start: 20071101

REACTIONS (5)
  - ANAEMIA [None]
  - BONE MARROW TUMOUR CELL INFILTRATION [None]
  - DIZZINESS [None]
  - RASH [None]
  - SKIN DISCOLOURATION [None]
